FAERS Safety Report 10726385 (Version 1)
Quarter: 2015Q1

REPORT INFORMATION
  Report Type: Spontaneous
  Country: US (occurrence: None)
  Receive Date: 20150120
  Receipt Date: 20150120
  Transmission Date: 20150721
  Serious: No
  Sender: FDA-Public Use
  Company Number: None

PATIENT
  Age: 34 Year
  Sex: Male
  Weight: 224.08 kg

DRUGS (2)
  1. PERFLUTREN [Suspect]
     Active Substance: PERFLUTREN
     Indication: DYSPNOEA
     Route: 042
     Dates: start: 20141215
  2. PERFLUTREN [Suspect]
     Active Substance: PERFLUTREN
     Indication: SLEEP APNOEA SYNDROME
     Route: 042
     Dates: start: 20141215

REACTIONS (1)
  - Pain [None]

NARRATIVE: CASE EVENT DATE: 20141215
